FAERS Safety Report 16101576 (Version 6)
Quarter: 2020Q1

REPORT INFORMATION
  Report Type: Report from Study
  Country: PL (occurrence: PL)
  Receive Date: 20190321
  Receipt Date: 20200130
  Transmission Date: 20200409
  Serious: Yes (Death, Disabling)
  Sender: FDA-Public Use
  Company Number: PL-PFIZER INC-2019119255

PATIENT
  Age: 53 Year
  Sex: Male
  Weight: 86 kg

DRUGS (10)
  1. IRINOTECAN HCL [Suspect]
     Active Substance: IRINOTECAN HYDROCHLORIDE
     Indication: COLORECTAL CANCER METASTATIC
     Dosage: 360 MG, EVERY 2 WEEKS, Q2W
     Route: 042
     Dates: start: 20181228, end: 20190125
  2. CLEMASTINE [Concomitant]
     Active Substance: CLEMASTINE
     Indication: PRODUCT USED FOR UNKNOWN INDICATION
     Dosage: UNK
     Route: 065
     Dates: start: 20181227
  3. FLUOROURACIL. [Suspect]
     Active Substance: FLUOROURACIL
     Indication: COLORECTAL CANCER METASTATIC
     Dosage: 2000 MG, EVERY 2 WEEKS, Q2W
     Route: 042
     Dates: start: 20181228, end: 20190126
  4. HYDROCORTIZON [HYDROCORTISONE] [Concomitant]
     Indication: PRODUCT USED FOR UNKNOWN INDICATION
     Dosage: UNK
     Route: 065
     Dates: start: 20181227
  5. PARACETAMOL [Concomitant]
     Active Substance: ACETAMINOPHEN
     Indication: PRODUCT USED FOR UNKNOWN INDICATION
     Dosage: UNK
     Route: 065
     Dates: start: 20181227
  6. ATROPINA [ATROPINE] [Concomitant]
     Indication: PRODUCT USED FOR UNKNOWN INDICATION
     Dosage: UNK
     Route: 065
     Dates: start: 20181228
  7. FOLINIC ACID [Suspect]
     Active Substance: LEUCOVORIN
     Indication: COLORECTAL CANCER METASTATIC
     Dosage: 200 MG, 2 / WEEK, SOLUTION FOR INFUSION
     Route: 042
     Dates: start: 20181228, end: 20190126
  8. CALCIUM FOLINATE [Suspect]
     Active Substance: LEUCOVORIN CALCIUM
     Indication: COLORECTAL CANCER METASTATIC
     Dosage: 200 MG, EVERY 2 WEEKS
     Route: 042
     Dates: start: 20181228, end: 20190126
  9. CETUXIMAB. [Suspect]
     Active Substance: CETUXIMAB
     Indication: COLORECTAL CANCER METASTATIC
     Dosage: EVERY 2 WEEKS, BIW; CUMULATIVE DOSE TO FIRST REACTION (NUMBER): 1500MG/M2
     Route: 042
     Dates: start: 20181227, end: 20190125
  10. ONDANSETRON [Concomitant]
     Active Substance: ONDANSETRON
     Indication: PRODUCT USED FOR UNKNOWN INDICATION
     Dosage: UNK
     Route: 065
     Dates: start: 20181228

REACTIONS (5)
  - Renal failure [Fatal]
  - Hyperglycaemia [Fatal]
  - Diarrhoea [Fatal]
  - Fatigue [Fatal]
  - Neutropenia [Fatal]

NARRATIVE: CASE EVENT DATE: 20190206
